FAERS Safety Report 5556364-9 (Version None)
Quarter: 2007Q4

REPORT INFORMATION
  Report Type: 
  Country: None (occurrence: None)
  Receive Date: 20071211
  Receipt Date: 20071127
  Transmission Date: 20080405
  Serious: Yes (Other)
  Sender: FDA-Public Use
  Company Number: US021627

PATIENT
  Sex: Male

DRUGS (9)
  1. GABITRIL [Suspect]
     Indication: CONVULSION
     Dosage: 1 MG BID ORAL
     Route: 048
  2. GABITRIL [Suspect]
     Indication: CONVULSION
     Dosage: 2 MG BID ORAL
     Route: 048
     Dates: end: 20070715
  3. GABITRIL [Suspect]
     Indication: CONVULSION
     Dates: start: 20070716
  4. CLONAZEPAM [Concomitant]
  5. PROPRANOLOL [Concomitant]
  6. GUANABENZ [Concomitant]
  7. GUANFACINE HYDROCHLORIDE [Concomitant]
  8. BUTISOL [Concomitant]
  9. PHENOBARBITAL TAB [Concomitant]

REACTIONS (3)
  - CONVULSION [None]
  - MUSCULOSKELETAL STIFFNESS [None]
  - PERIPHERAL PARALYSIS [None]
